FAERS Safety Report 4440056-3 (Version None)
Quarter: 2004Q3

REPORT INFORMATION
  Report Type: 
  Country: None (occurrence: None)
  Receive Date: 20040902
  Receipt Date: 20040823
  Transmission Date: 20050211
  Serious: Yes (Hospitalization)
  Sender: FDA-Public Use
  Company Number: 376732

PATIENT
  Age: 69 Year
  Sex: Female

DRUGS (1)
  1. DILATREND [Suspect]
     Indication: MYOCARDIAL ISCHAEMIA
     Dosage: 25MG PER DAY
     Route: 048

REACTIONS (4)
  - BRONCHOSPASM [None]
  - FACE OEDEMA [None]
  - TACHYPNOEA [None]
  - URTICARIA [None]
